FAERS Safety Report 9834817 (Version 1)
Quarter: 2014Q1

REPORT INFORMATION
  Report Type: Spontaneous
  Country: US (occurrence: US)
  Receive Date: 20140122
  Receipt Date: 20140122
  Transmission Date: 20141002
  Serious: No
  Sender: FDA-Public Use
  Company Number: US-BAUSCH-BL-2013-002514

PATIENT
  Age: 59 Year
  Sex: Female

DRUGS (2)
  1. ALAWAY (KETOTIFEN FUMARATE OPHTHALMIC SOLUTION) [Suspect]
     Indication: OCULAR HYPERAEMIA
     Dosage: 1 DROP; DAILY; OPHTHALMIC
     Route: 047
     Dates: start: 20130429, end: 20130430
  2. ALAWAY (KETOTIFEN FUMARATE OPHTHALMIC SOLUTION) [Suspect]
     Indication: OFF LABEL USE

REACTIONS (1)
  - Instillation site pain [Recovered/Resolved]
